FAERS Safety Report 17362232 (Version 3)
Quarter: 2020Q3

REPORT INFORMATION
  Report Type: Report from Study
  Country: None (occurrence: US)
  Receive Date: 20200203
  Receipt Date: 20200916
  Transmission Date: 20201102
  Serious: Yes (Hospitalization, Other)
  Sender: FDA-Public Use
  Company Number: US-ABBVIE-20K-163-3260129-00

PATIENT
  Sex: Female
  Weight: 53.57 kg

DRUGS (9)
  1. ALENDRONATE [Concomitant]
     Active Substance: ALENDRONATE SODIUM
     Indication: BONE DENSITY ABNORMAL
  2. NATEGLINIDE. [Concomitant]
     Active Substance: NATEGLINIDE
     Indication: TYPE 2 DIABETES MELLITUS
  3. FISH OIL [Concomitant]
     Active Substance: FISH OIL
     Indication: PRODUCT USED FOR UNKNOWN INDICATION
  4. LEVOTHYROXINE. [Concomitant]
     Active Substance: LEVOTHYROXINE
     Indication: THYROID DISORDER
  5. CREON [Suspect]
     Active Substance: PANCRELIPASE AMYLASE\PANCRELIPASE LIPASE\PANCRELIPASE PROTEASE
     Indication: PANCREATIC CARCINOMA
     Route: 048
     Dates: start: 1995
  6. CREON [Suspect]
     Active Substance: PANCRELIPASE AMYLASE\PANCRELIPASE LIPASE\PANCRELIPASE PROTEASE
     Route: 048
     Dates: start: 2016
  7. VITAMIN D3 [Concomitant]
     Active Substance: CHOLECALCIFEROL
     Indication: SUPPLEMENTATION THERAPY
  8. CREON [Suspect]
     Active Substance: PANCRELIPASE AMYLASE\PANCRELIPASE LIPASE\PANCRELIPASE PROTEASE
     Route: 048
  9. METOPROLOL. [Concomitant]
     Active Substance: METOPROLOL
     Indication: HYPERTENSION

REACTIONS (9)
  - Cholecystectomy [Recovered/Resolved]
  - Obstruction gastric [Unknown]
  - Uterine prolapse [Recovered/Resolved]
  - Herpes zoster [Recovered/Resolved]
  - Hypothyroidism [Unknown]
  - Type 2 diabetes mellitus [Not Recovered/Not Resolved]
  - Meningitis bacterial [Recovered/Resolved]
  - Hyperthyroidism [Unknown]
  - Bladder operation [Recovered/Resolved]

NARRATIVE: CASE EVENT DATE: 2013
